FAERS Safety Report 4495045-X (Version None)
Quarter: 2004Q4

REPORT INFORMATION
  Report Type: 
  Country: None (occurrence: None)
  Receive Date: 20041104
  Receipt Date: 20041011
  Transmission Date: 20050328
  Serious: Yes (Death, Hospitalization)
  Sender: FDA-Public Use
  Company Number: M2004-1623

PATIENT
  Age: 90 Year
  Sex: Female
  Weight: 82 kg

DRUGS (7)
  1. ENALAPRIL [Suspect]
     Dosage: 20MG OD
  2. FLUOXETINE [Suspect]
     Dosage: 20 MG OD
  3. ASPIRIN [Suspect]
     Dosage: 75MG OD
     Route: 048
  4. MELOXICAM [Suspect]
     Dosage: 30MG
     Dates: end: 20040105
  5. PREDNISOLONE [Suspect]
     Dosage: 2.5MG DAILY
  6. BURINEX A (AMILORIDE/BUMETANIDE) [Suspect]
     Dosage: 1 DAILY
  7. BELLADONNA EXTRACT [Suspect]
     Dosage: 40ML
     Route: 048

REACTIONS (1)
  - MELAENA [None]
